FAERS Safety Report 10929806 (Version 3)
Quarter: 2016Q1

REPORT INFORMATION
  Report Type: Report from Study
  Country: US (occurrence: US)
  Receive Date: 20150319
  Receipt Date: 20160114
  Transmission Date: 20160525
  Serious: Yes (Hospitalization, Other)
  Sender: FDA-Public Use
  Company Number: US-SA-2015SA026186

PATIENT
  Age: 62 Year
  Sex: Male

DRUGS (2)
  1. FABRAZYME [Suspect]
     Active Substance: AGALSIDASE BETA
     Indication: FABRY^S DISEASE
     Dosage: START DATE: APPROXIMATELY 10 YEARS
     Route: 041
     Dates: start: 20040202
  2. BENADRYL [Concomitant]
     Active Substance: DIPHENHYDRAMINE HYDROCHLORIDE
     Indication: PREMEDICATION

REACTIONS (15)
  - Haemorrhoid operation [Unknown]
  - Surgery [Unknown]
  - Feeling abnormal [Unknown]
  - Postoperative wound infection [Unknown]
  - Infusion related reaction [Unknown]
  - Localised infection [Recovering/Resolving]
  - Movement disorder [Unknown]
  - Flushing [Recovered/Resolved]
  - Nausea [Recovered/Resolved]
  - Gastrointestinal disorder [Recovered/Resolved]
  - Tremor [Unknown]
  - Post procedural haemorrhage [Unknown]
  - Chills [Unknown]
  - Pyrexia [Unknown]
  - Limb injury [Unknown]

NARRATIVE: CASE EVENT DATE: 20150217
